FAERS Safety Report 16476729 (Version 1)
Quarter: 2019Q2

REPORT INFORMATION
  Report Type: Spontaneous
  Country: US (occurrence: US)
  Receive Date: 20190626
  Receipt Date: 20190626
  Transmission Date: 20190711
  Serious: No
  Sender: FDA-Public Use
  Company Number: US-BEH-2019103328

PATIENT
  Sex: Female

DRUGS (15)
  1. IPRATROPIUM BROMIDE. [Concomitant]
     Active Substance: IPRATROPIUM BROMIDE
  2. METFORMIN HCL [Concomitant]
     Active Substance: METFORMIN HYDROCHLORIDE
  3. SPIRIVA [Concomitant]
     Active Substance: TIOTROPIUM BROMIDE MONOHYDRATE
  4. POTASSIUM [Concomitant]
     Active Substance: POTASSIUM
  5. QVAR [Concomitant]
     Active Substance: BECLOMETHASONE DIPROPIONATE
  6. SINGULAIR [Concomitant]
     Active Substance: MONTELUKAST SODIUM
  7. XANAX [Concomitant]
     Active Substance: ALPRAZOLAM
  8. HIZENTRA [Suspect]
     Active Substance: HUMAN IMMUNOGLOBULIN G
     Indication: ESSENTIAL HYPERTENSION
     Dosage: 16 GRAM, QW
     Route: 058
     Dates: start: 2018
  9. ALBUTEROL SULFATE. [Concomitant]
     Active Substance: ALBUTEROL SULFATE
  10. METOPROLOL SUCCINATE. [Concomitant]
     Active Substance: METOPROLOL SUCCINATE
  11. ACIDOPHILUS PROBIOTIC [Concomitant]
  12. AMOXICILLIN AND CLAVULANATE POTASSIUM [Concomitant]
     Active Substance: AMOXICILLIN\CLAVULANATE POTASSIUM
  13. PREDNISONE. [Concomitant]
     Active Substance: PREDNISONE
  14. VITAMIN D NOS [Concomitant]
     Active Substance: VITAMIN D NOS
  15. LASIX P [Concomitant]
     Active Substance: FUROSEMIDE

REACTIONS (3)
  - Product use in unapproved indication [Unknown]
  - No adverse event [Unknown]
  - Dyspnoea [Recovering/Resolving]
